FAERS Safety Report 25613389 (Version 2)
Quarter: 2025Q3

REPORT INFORMATION
  Report Type: Report from Study
  Country: US (occurrence: US)
  Receive Date: 20250728
  Receipt Date: 20250811
  Transmission Date: 20251020
  Serious: No
  Sender: TAIHO ONCOLOGY INC
  Company Number: US-TAIHOP-2025-007780

PATIENT
  Sex: Female

DRUGS (6)
  1. INQOVI [Suspect]
     Active Substance: CEDAZURIDINE\DECITABINE
     Indication: Myelodysplastic syndrome
     Dosage: 135 MG (DECITABINE 35 MG + CEDAZURIDINE 100 MG) FOR 5 CONSECUTIVE DAYS EVERY 28 DAYS.?CYCLE UNKNOWN
     Route: 048
  2. VIT D-2 (ERGOCAL) [Concomitant]
     Indication: Product used for unknown indication
  3. ESZOPICLONE [Concomitant]
     Active Substance: ESZOPICLONE
     Indication: Product used for unknown indication
  4. AMERICAN GINSENG [Concomitant]
     Active Substance: AMERICAN GINSENG
     Indication: Product used for unknown indication
  5. LACTULOSE [Concomitant]
     Active Substance: LACTULOSE
     Indication: Product used for unknown indication
  6. DOCUSATE CALCIUM [Concomitant]
     Active Substance: DOCUSATE CALCIUM
     Indication: Product used for unknown indication

REACTIONS (3)
  - White blood cell count decreased [Recovering/Resolving]
  - Fatigue [Recovering/Resolving]
  - Skin disorder [Unknown]
